FAERS Safety Report 24307578 (Version 1)
Quarter: 2024Q3

REPORT INFORMATION
  Report Type: Spontaneous
  Country: CO (occurrence: CO)
  Receive Date: 20240911
  Receipt Date: 20240911
  Transmission Date: 20241017
  Serious: Yes (Other)
  Sender: AMGEN
  Company Number: CO-PFIZER INC-PV202400116660

PATIENT
  Age: 45 Year
  Sex: Female

DRUGS (1)
  1. ENBREL [Suspect]
     Active Substance: ETANERCEPT
     Indication: Product used for unknown indication
     Dosage: 50 MILLIGRAM, QWK
     Route: 065
     Dates: end: 202405

REACTIONS (12)
  - Choking [Unknown]
  - Nephropathy [Unknown]
  - Thyroid disorder [Unknown]
  - Skin discolouration [Unknown]
  - Headache [Unknown]
  - Food aversion [Unknown]
  - Weight decreased [Unknown]
  - Amnesia [Unknown]
  - Intervertebral disc protrusion [Unknown]
  - Nerve compression [Unknown]
  - Lung disorder [Unknown]
  - Productive cough [Unknown]
